FAERS Safety Report 8918882 (Version 1)
Quarter: 2012Q4

REPORT INFORMATION
  Report Type: Spontaneous
  Country: US (occurrence: None)
  Receive Date: 20121115
  Receipt Date: 20121115
  Transmission Date: 20130627
  Serious: Yes (Hospitalization, Other)
  Sender: FDA-Public Use
  Company Number: None

PATIENT
  Age: 25 Year
  Sex: Female
  Weight: 63.5 kg

DRUGS (2)
  1. VIORELE 0.15 MG/0.02 MG GLENMARK GENERICS [Suspect]
     Indication: BIRTH CONTROL
     Dates: start: 20120801, end: 20121112
  2. VIORELE 0.15 MG/0.02 MG GLENMARK GENERICS [Suspect]
     Indication: MENSTRUAL CYCLE MANAGEMENT
     Dates: start: 20120801, end: 20121112

REACTIONS (6)
  - Anxiety [None]
  - Heart rate increased [None]
  - Blood pressure increased [None]
  - Chest pain [None]
  - Dyspnoea [None]
  - Product substitution issue [None]
